FAERS Safety Report 8422664-8 (Version None)
Quarter: 2012Q2

REPORT INFORMATION
  Report Type: 
  Country: None (occurrence: None)
  Receive Date: 20120608
  Receipt Date: 20120529
  Transmission Date: 20120825
  Serious: Yes (Hospitalization)
  Sender: FDA-Public Use
  Company Number: JP-ROCHE-1071076

PATIENT
  Sex: Male
  Weight: 33 kg

DRUGS (6)
  1. KREMEZIN [Concomitant]
     Indication: RENAL FAILURE CHRONIC
     Route: 048
     Dates: start: 20120220
  2. ALLOPURINOL [Suspect]
     Indication: HYPERURICAEMIA
     Route: 048
     Dates: start: 20120305
  3. LASIX [Concomitant]
     Indication: HYPERTENSION
     Dosage: 40-80MG
     Route: 048
     Dates: start: 20120220
  4. URALYT [Concomitant]
     Indication: HYPERURICAEMIA
     Route: 048
     Dates: start: 20120416
  5. MIRCERA [Suspect]
     Indication: NEPHROGENIC ANAEMIA
     Route: 042
     Dates: start: 20120402, end: 20120502
  6. FAMOTIDINE [Suspect]
     Indication: GASTRITIS
     Route: 048
     Dates: start: 20120502

REACTIONS (2)
  - BLEEDING TIME PROLONGED [None]
  - THROMBOCYTOPENIA [None]
